FAERS Safety Report 8549617-3 (Version None)
Quarter: 2012Q3

REPORT INFORMATION
  Report Type: 
  Country: None (occurrence: None)
  Receive Date: 20120730
  Receipt Date: 20120716
  Transmission Date: 20120928
  Serious: Yes (Hospitalization, Other)
  Sender: FDA-Public Use
  Company Number: US-009507513-1201USA02556

PATIENT

DRUGS (4)
  1. FOSAMAX [Suspect]
     Indication: OSTEOPOROSIS
     Dosage: UNK, QW
     Route: 048
     Dates: start: 19980101, end: 20050101
  2. FOSAMAX [Suspect]
     Dosage: UNK
     Route: 048
  3. VITAMIN D (UNSPECIFIED) [Concomitant]
     Dosage: 2000 IU, QD
     Route: 048
     Dates: start: 20050101
  4. CALCIUM (UNSPECIFIED) [Concomitant]
     Dosage: 1 DF, QD
     Dates: start: 20050101

REACTIONS (26)
  - ANXIETY [None]
  - BREAST CANCER [None]
  - FEMUR FRACTURE [None]
  - HYPERTENSION [None]
  - HYPOPHOSPHATASIA [None]
  - ADVERSE EVENT [None]
  - TYPE V HYPERLIPIDAEMIA [None]
  - SPINAL OSTEOARTHRITIS [None]
  - OEDEMA PERIPHERAL [None]
  - INTERVERTEBRAL DISC DEGENERATION [None]
  - HYPOXIA [None]
  - SEDATION [None]
  - IMPAIRED HEALING [None]
  - CARDIAC MURMUR [None]
  - MACULAR DEGENERATION [None]
  - FALL [None]
  - TOOTH EXTRACTION [None]
  - PNEUMONIA [None]
  - BREAST ABSCESS [None]
  - TOOTH DISORDER [None]
  - ANAEMIA [None]
  - SOFT TISSUE INJURY [None]
  - ARTHROPATHY [None]
  - COLON ADENOMA [None]
  - RESPIRATORY FAILURE [None]
  - SLEEP APNOEA SYNDROME [None]
